FAERS Safety Report 4746097-0 (Version None)
Quarter: 2005Q3

REPORT INFORMATION
  Report Type: 
  Country: None (occurrence: None)
  Receive Date: 20050816
  Receipt Date: 20050804
  Transmission Date: 20060218
  Serious: Yes (Other)
  Sender: FDA-Public Use
  Company Number: BE-BRISTOL-MYERS SQUIBB COMPANY-13062773

PATIENT
  Age: 89 Year
  Sex: Female

DRUGS (6)
  1. CEFEPIME HCL [Suspect]
     Indication: PYREXIA
  2. VANCOMYCIN [Suspect]
     Indication: CLOSTRIDIAL INFECTION
     Route: 048
  3. PERENTEROL [Suspect]
     Indication: CLOSTRIDIAL INFECTION
     Route: 048
  4. METRONIDAZOLE [Concomitant]
     Indication: CLOSTRIDIAL INFECTION
     Route: 048
  5. AMOXICILLIN [Concomitant]
     Indication: BRONCHITIS
  6. CEFUROXIME AXETIL [Concomitant]
     Indication: URINARY TRACT INFECTION

REACTIONS (3)
  - ANOREXIA NERVOSA [None]
  - FUNGAEMIA [None]
  - PYREXIA [None]
